FAERS Safety Report 25019179 (Version 4)
Quarter: 2025Q2

REPORT INFORMATION
  Report Type: Spontaneous
  Country: DZ (occurrence: DZ)
  Receive Date: 20250227
  Receipt Date: 20250421
  Transmission Date: 20250716
  Serious: Yes (Hospitalization, Other)
  Sender: BIOVITRUM
  Company Number: DZ-BIOVITRUM-2025-DZ-002741

PATIENT
  Age: 3 Year
  Sex: Female

DRUGS (1)
  1. ORFADIN [Suspect]
     Active Substance: NITISINONE
     Indication: Tyrosinaemia

REACTIONS (2)
  - Gastrointestinal haemorrhage [Unknown]
  - Hepatic failure [Unknown]
